FAERS Safety Report 19205588 (Version 2)
Quarter: 2021Q2

REPORT INFORMATION
  Report Type: Spontaneous
  Country: US (occurrence: US)
  Receive Date: 20210503
  Receipt Date: 20210513
  Transmission Date: 20210717
  Serious: Yes (Hospitalization)
  Sender: FDA-Public Use
  Company Number: US-FARMAPROD-202104-0498

PATIENT
  Age: 53 Year
  Sex: Female

DRUGS (10)
  1. AMOXICILLIN. [Concomitant]
     Active Substance: AMOXICILLIN
     Route: 048
  2. TIVICAY [Concomitant]
     Active Substance: DOLUTEGRAVIR SODIUM
     Route: 048
  3. DESCOVY [Concomitant]
     Active Substance: EMTRICITABINE\TENOFOVIR ALAFENAMIDE FUMARATE
     Route: 048
  4. OXERVATE [Suspect]
     Active Substance: CENEGERMIN-BKBJ
     Indication: NEUROTROPHIC KERATOPATHY
     Route: 047
     Dates: start: 20210323
  5. ACUVAIL [Concomitant]
     Active Substance: KETOROLAC TROMETHAMINE
     Route: 031
  6. AMBIEN [Concomitant]
     Active Substance: ZOLPIDEM TARTRATE
     Route: 048
  7. PRED FORTE [Concomitant]
     Active Substance: PREDNISOLONE ACETATE
     Route: 031
  8. ZYLET [Concomitant]
     Active Substance: LOTEPREDNOL ETABONATE\TOBRAMYCIN
     Route: 031
  9. REFRESH 1.4?0.6% [Concomitant]
     Route: 031
  10. BESIVANCE [Concomitant]
     Active Substance: BESIFLOXACIN

REACTIONS (2)
  - Eye irritation [Recovered/Resolved]
  - Clostridium difficile infection [Unknown]

NARRATIVE: CASE EVENT DATE: 2021
